FAERS Safety Report 8179258-1 (Version None)
Quarter: 2012Q1

REPORT INFORMATION
  Report Type: 
  Country: None (occurrence: None)
  Receive Date: 20120229
  Receipt Date: 20120229
  Transmission Date: 20120608
  Serious: Yes (Hospitalization)
  Sender: FDA-Public Use
  Company Number: None

PATIENT
  Sex: Female

DRUGS (2)
  1. MEANINGFUL BEAUTY DAY CREAM SPF 20, GUTHY/RENKER [Suspect]
     Indication: PROPHYLAXIS AGAINST SOLAR RADIATION
     Dosage: DAILY, SKIN CARE
     Route: 061
  2. MEANINGFUL BEAUTY EYE LIFTING CREAM, GUTHY/RENKER [Suspect]
     Dosage: DAILY, SKIN CARE
     Route: 061

REACTIONS (2)
  - EYE SWELLING [None]
  - URTICARIA [None]
